FAERS Safety Report 15644740 (Version 4)
Quarter: 2018Q4

REPORT INFORMATION
  Report Type: Report from Study
  Country: KR (occurrence: KR)
  Receive Date: 20181121
  Receipt Date: 20181228
  Transmission Date: 20190205
  Serious: Yes (Hospitalization)
  Sender: FDA-Public Use
  Company Number: KR-BAYER-2018-215982

PATIENT

DRUGS (1)
  1. BETAFERON [Suspect]
     Active Substance: INTERFERON BETA-1B
     Indication: MULTIPLE SCLEROSIS
     Dosage: UNK
     Dates: start: 20120927

REACTIONS (6)
  - Poor quality sleep [Recovered/Resolved]
  - Vomiting [Recovered/Resolved]
  - Nasopharyngitis [None]
  - Pyrexia [Recovered/Resolved]
  - Stress [None]
  - Migraine [Recovered/Resolved]

NARRATIVE: CASE EVENT DATE: 201811
